FAERS Safety Report 12303974 (Version 1)
Quarter: 2016Q2

REPORT INFORMATION
  Report Type: Spontaneous
  Country: US (occurrence: None)
  Receive Date: 20160425
  Receipt Date: 20160425
  Transmission Date: 20160815
  Serious: Yes (Hospitalization)
  Sender: FDA-Public Use
  Company Number: None

PATIENT
  Age: 41 Year
  Sex: Female
  Weight: 61.24 kg

DRUGS (4)
  1. TIZANIDINE 4 MG APOTEX [Suspect]
     Active Substance: TIZANIDINE
     Indication: SPINAL FUSION SURGERY
     Route: 048
     Dates: start: 20151218, end: 20160110
  2. OXYCODONE [Suspect]
     Active Substance: OXYCODONE
  3. IBUPROFEN. [Concomitant]
     Active Substance: IBUPROFEN
  4. TOPROL XL [Concomitant]
     Active Substance: METOPROLOL SUCCINATE

REACTIONS (5)
  - Tinnitus [None]
  - Depression [None]
  - Panic attack [None]
  - Feeling abnormal [None]
  - Middle insomnia [None]

NARRATIVE: CASE EVENT DATE: 20160105
